FAERS Safety Report 20024964 (Version 2)
Quarter: 2022Q3

REPORT INFORMATION
  Report Type: Report from Study
  Country: US (occurrence: US)
  Receive Date: 20211102
  Receipt Date: 20220805
  Transmission Date: 20221027
  Serious: Yes (Hospitalization, Other)
  Sender: FDA-Public Use
  Company Number: US-JAZZ-2021-US-019430

PATIENT
  Age: 40 Year
  Sex: Male

DRUGS (5)
  1. XYREM [Suspect]
     Active Substance: SODIUM OXYBATE
     Indication: Narcolepsy
     Dosage: 2 GRAM, BID
     Route: 048
     Dates: start: 201007, end: 201008
  2. XYREM [Suspect]
     Active Substance: SODIUM OXYBATE
     Indication: Cataplexy
     Dosage: DOSE ADJUSTMENT
     Route: 048
     Dates: start: 201008, end: 201106
  3. XYREM [Suspect]
     Active Substance: SODIUM OXYBATE
     Dosage: 4.5 GRAM, BID
     Route: 048
     Dates: start: 201106
  4. METHYLPHENIDATE [Concomitant]
     Active Substance: METHYLPHENIDATE
     Indication: Product used for unknown indication
  5. MELOXICAM [Concomitant]
     Active Substance: MELOXICAM
     Indication: Product used for unknown indication

REACTIONS (27)
  - Coma [Recovered/Resolved]
  - Accident [Recovering/Resolving]
  - Craniocerebral injury [Recovering/Resolving]
  - Subdural haematoma [Unknown]
  - Loss of consciousness [Recovered/Resolved]
  - Subdural hygroma [Unknown]
  - Jaw fracture [Unknown]
  - Subarachnoid haemorrhage [Recovered/Resolved]
  - White blood cell count decreased [Unknown]
  - Neutrophil count decreased [Unknown]
  - Lymphocyte count increased [Unknown]
  - Sinus bradycardia [Unknown]
  - Monocyte count increased [Unknown]
  - Platelet count increased [Unknown]
  - Blood glucose increased [Unknown]
  - Haemoglobin decreased [Unknown]
  - Haematocrit decreased [Unknown]
  - Red blood cell count decreased [Unknown]
  - Blood chloride decreased [Unknown]
  - Protein total decreased [Unknown]
  - Blood creatine phosphokinase decreased [Unknown]
  - Activated partial thromboplastin time prolonged [Unknown]
  - Drug screen positive [Unknown]
  - Urine ketone body present [Unknown]
  - Urobilinogen urine increased [Unknown]
  - Urine analysis abnormal [Unknown]
  - Depression [Unknown]

NARRATIVE: CASE EVENT DATE: 20210401
